FAERS Safety Report 5830306-0 (Version None)
Quarter: 2008Q3

REPORT INFORMATION
  Report Type: 
  Country: None (occurrence: None)
  Receive Date: 20080801
  Receipt Date: 20080724
  Transmission Date: 20090109
  Serious: Yes (Hospitalization)
  Sender: FDA-Public Use
  Company Number: JP-JNJFOC-20080605181

PATIENT
  Age: 23 Year
  Sex: Male
  Weight: 72.6 kg

DRUGS (2)
  1. LEVOFLOXACIN [Suspect]
     Indication: DRUG USE FOR UNKNOWN INDICATION
     Route: 065
  2. FAMOTIDINE [Suspect]
     Indication: DRUG USE FOR UNKNOWN INDICATION
     Route: 065

REACTIONS (3)
  - HYPERAEMIA [None]
  - IRIDOCYCLITIS [None]
  - NEPHRITIS INTERSTITIAL [None]
